FAERS Safety Report 6261765-X (Version None)
Quarter: 2009Q3

REPORT INFORMATION
  Report Type: 
  Country: None (occurrence: None)
  Receive Date: 20090707
  Receipt Date: 20090707
  Transmission Date: 20100115
  Serious: Yes (Other)
  Sender: FDA-Public Use
  Company Number: None

PATIENT
  Age: 48 Year
  Sex: Male
  Weight: 83.9154 kg

DRUGS (2)
  1. OXYCONTIN [Suspect]
     Indication: BACK PAIN
     Dosage: 3 80 MG 2 X DAY PO
     Route: 048
     Dates: start: 20000915, end: 20031207
  2. OXYCONTIN [Suspect]
     Indication: BACK PAIN
     Dosage: 3 80 MG 2 X DAY PO
     Route: 048
     Dates: start: 20090104, end: 20090704

REACTIONS (3)
  - ANHEDONIA [None]
  - IMPAIRED WORK ABILITY [None]
  - SOMNAMBULISM [None]
